FAERS Safety Report 24992743 (Version 1)
Quarter: 2025Q1

REPORT INFORMATION
  Report Type: Spontaneous
  Country: US (occurrence: US)
  Receive Date: 20250221
  Receipt Date: 20250221
  Transmission Date: 20250409
  Serious: No
  Sender: ENDO
  Company Number: US-ENDO PHARMACEUTICALS INC-2024-001704

PATIENT
  Sex: Female

DRUGS (1)
  1. LAMOTRIGINE [Suspect]
     Active Substance: LAMOTRIGINE
     Indication: Seizure
     Dosage: 250 MILLIGRAM, BID (1 TABLET BY MOUTH IN THE MORNING AND IN THE EVENING)
     Route: 048

REACTIONS (4)
  - Loss of control of legs [Not Recovered/Not Resolved]
  - Gait inability [Not Recovered/Not Resolved]
  - Diplopia [Not Recovered/Not Resolved]
  - Suspected product contamination [Unknown]

NARRATIVE: CASE EVENT DATE: 20240401
